FAERS Safety Report 6253670-X (Version None)
Quarter: 2009Q3

REPORT INFORMATION
  Report Type: 
  Country: None (occurrence: None)
  Receive Date: 20090701
  Receipt Date: 20090626
  Transmission Date: 20100115
  Serious: Yes (Hospitalization)
  Sender: FDA-Public Use
  Company Number: US-CELGENEUS-163-C5013-09062185

PATIENT
  Sex: Female
  Weight: 85.6 kg

DRUGS (18)
  1. CC-5013 [Suspect]
     Indication: T-CELL LYMPHOMA
     Route: 048
     Dates: start: 20090615
  2. INSULIN [Concomitant]
     Dosage: PER SLIDING SCALE
     Route: 058
     Dates: start: 20081201
  3. LUMIGAN [Concomitant]
     Indication: GLAUCOMA
     Route: 047
     Dates: start: 20060101
  4. HYDROCHLOROTHIAZIDE [Concomitant]
     Indication: HYPERTENSION
     Route: 048
     Dates: start: 19990101
  5. QUINAPRIL [Concomitant]
     Indication: HYPERTENSION
     Route: 048
     Dates: start: 19990101, end: 20090618
  6. QUINAPRIL [Concomitant]
     Route: 048
     Dates: start: 20090618
  7. LASIX [Concomitant]
     Route: 048
     Dates: start: 20090528
  8. M.V.I. [Concomitant]
     Indication: VITAMIN SUPPLEMENTATION
     Route: 048
     Dates: start: 20040101
  9. FISH OIL [Concomitant]
     Indication: SUPPLEMENTATION THERAPY
     Route: 048
     Dates: start: 20040101
  10. ASPIRIN [Concomitant]
     Route: 048
     Dates: start: 20090612
  11. ALLOPURINOL [Concomitant]
     Indication: PROPHYLAXIS
     Route: 048
     Dates: start: 20090612
  12. ATIVAN [Concomitant]
     Indication: INSOMNIA
     Route: 048
     Dates: start: 20080101
  13. ATIVAN [Concomitant]
     Indication: ANXIETY
  14. PENICILLIN V POTASSIUM [Concomitant]
     Indication: DENTAL DISORDER PROPHYLAXIS
     Route: 048
     Dates: start: 20090612
  15. LEVEMIR [Concomitant]
     Dosage: 32U
     Route: 058
     Dates: start: 20081201
  16. PREDNISONE [Concomitant]
     Route: 048
     Dates: start: 20090622
  17. AREDIA [Concomitant]
     Indication: DRUG USE FOR UNKNOWN INDICATION
     Route: 065
     Dates: start: 20090622
  18. VICODIN [Concomitant]
     Indication: PAIN
     Route: 065

REACTIONS (2)
  - ATAXIA [None]
  - RENAL FAILURE [None]
